FAERS Safety Report 16208058 (Version 3)
Quarter: 2019Q2

REPORT INFORMATION
  Report Type: Spontaneous
  Country: FR (occurrence: FR)
  Receive Date: 20190417
  Receipt Date: 20190515
  Transmission Date: 20190711
  Serious: Yes (Death)
  Sender: FDA-Public Use
  Company Number: FR-PFIZER INC-2019161112

PATIENT
  Age: 35 Year
  Sex: Male
  Weight: 75 kg

DRUGS (10)
  1. NOXAFIL [Suspect]
     Active Substance: POSACONAZOLE
     Indication: OPPORTUNISTIC INFECTION PROPHYLAXIS
     Dosage: 3 DF, UNK
     Route: 048
     Dates: start: 20190318, end: 20190323
  2. MYLOTARG [Suspect]
     Active Substance: GEMTUZUMAB OZOGAMICIN
     Indication: ACUTE MYELOID LEUKAEMIA
     Dosage: 16.7 MG, SINGLE
     Route: 042
     Dates: start: 20190315, end: 20190315
  3. ZOVIRAX [Suspect]
     Active Substance: ACYCLOVIR
     Dosage: 1000 MG, 1X/DAY
     Route: 048
     Dates: start: 20190312, end: 20190323
  4. CYTARABINE. [Suspect]
     Active Substance: CYTARABINE
     Indication: ACUTE MYELOID LEUKAEMIA
     Dosage: 3720 MG, 1X/DAY
     Route: 042
     Dates: start: 20190312, end: 20190316
  5. PRIMPERAN [Suspect]
     Active Substance: METOCLOPRAMIDE HYDROCHLORIDE
     Indication: NAUSEA
     Dosage: 30 MG, 1X/DAY
     Route: 048
     Dates: start: 20190318, end: 20190323
  6. ZOPHREN [ONDANSETRON HYDROCHLORIDE] [Suspect]
     Active Substance: ONDANSETRON
     Indication: NAUSEA
     Dosage: 8 MG, CYCLIC
     Route: 042
     Dates: start: 20190312, end: 20190323
  7. PANTOPRAZOLE [Concomitant]
     Active Substance: PANTOPRAZOLE
     Dosage: 120 MG, 1X/DAY
     Route: 048
     Dates: start: 20190312, end: 20190323
  8. AMIKACIN. [Suspect]
     Active Substance: AMIKACIN
     Indication: INFECTION
     Dosage: 1 DF, SINGLE
     Route: 048
     Dates: start: 20190318, end: 20190318
  9. MITOXANTRONE TEVA [Suspect]
     Active Substance: MITOXANTRONE HYDROCHLORIDE
     Indication: ACUTE MYELOID LEUKAEMIA
     Dosage: 22.3 MG, 1X/DAY
     Route: 042
     Dates: start: 20190312, end: 20190314
  10. PIPERACILLIN AND TAZOBACTAM [Suspect]
     Active Substance: PIPERACILLIN SODIUM\TAZOBACTAM SODIUM
     Indication: INFECTION
     Dosage: 16 G, 1X/DAY
     Route: 042
     Dates: start: 20190318, end: 20190323

REACTIONS (2)
  - Hepatic failure [Fatal]
  - Hepatitis fulminant [Fatal]

NARRATIVE: CASE EVENT DATE: 20190323
